FAERS Safety Report 7775608-6 (Version None)
Quarter: 2011Q3

REPORT INFORMATION
  Report Type: 
  Country: None (occurrence: None)
  Receive Date: 20110921
  Receipt Date: 20110909
  Transmission Date: 20111222
  Serious: Yes (Hospitalization)
  Sender: FDA-Public Use
  Company Number: DSA_47585_2011

PATIENT
  Age: 84 Year
  Sex: Male

DRUGS (16)
  1. MIRTAZAPINE [Suspect]
     Indication: PRODUCT USED FOR UNKNOWN INDICATION
     Dosage: 45 MG AT BEDTIME, 30 MG QD
  2. ALLOPURINOL [Suspect]
     Indication: PRODUCT USED FOR UNKNOWN INDICATION
     Dosage: 300 MG QD, 100 MG QD
  3. DONEPEZIL (10 MG, 5 MG) [Suspect]
     Indication: PRODUCT USED FOR UNKNOWN INDICATION
     Dosage: 10 MG QD, 5 MG QD
  4. RISPERIDONE [Suspect]
     Indication: AGITATION
     Dosage: 0.25 MG BID PRN
  5. GABAPENTIN [Concomitant]
  6. OMEPRAZOLE [Concomitant]
  7. HYDROCHLOROTHIAZIDE [Concomitant]
  8. PRAVASTATIN [Concomitant]
  9. BUPROPION HYDROCHLORIDE (150 MG, 100 MG, 75 MG , 75 MG ,100MG ) [Suspect]
     Indication: PRODUCT USED FOR UNKNOWN INDICATION
     Dosage: 150 MG BID, 100 MG BID, 75 MG BID, 75 MG QD, 100 MG BID
  10. BUPROPION HYDROCHLORIDE (150 MG, 100 MG, 75 MG , 75 MG ,100MG ) [Suspect]
     Indication: PRODUCT USED FOR UNKNOWN INDICATION
     Dosage: 150 MG BID, 100 MG BID, 75 MG BID, 75 MG QD, 100 MG BID
  11. ASPIRIN [Concomitant]
  12. ATENOLOL [Concomitant]
  13. NITROGLYCERIN [Concomitant]
  14. LISINOPRIL [Concomitant]
  15. ACETAMINOPHEN [Concomitant]
  16. LIDOCAINE [Concomitant]

REACTIONS (24)
  - MUSCULAR WEAKNESS [None]
  - DYSARTHRIA [None]
  - SUICIDAL IDEATION [None]
  - ASTHENIA [None]
  - RESPIRATORY TRACT INFECTION [None]
  - AGITATION [None]
  - PSYCHOTIC DISORDER [None]
  - HALLUCINATION, VISUAL [None]
  - ATAXIA [None]
  - MYOCLONUS [None]
  - TREMOR [None]
  - DELUSION [None]
  - MOTOR DYSFUNCTION [None]
  - PARANOIA [None]
  - PNEUMONIA [None]
  - MENTAL STATUS CHANGES [None]
  - CONFUSIONAL STATE [None]
  - DRUG INTERACTION [None]
  - GAIT DISTURBANCE [None]
  - RENAL FAILURE ACUTE [None]
  - AGGRESSION [None]
  - FALL [None]
  - VERTIGO [None]
  - MOOD SWINGS [None]
